FAERS Safety Report 15121719 (Version 3)
Quarter: 2018Q3

REPORT INFORMATION
  Report Type: Spontaneous
  Country: DK (occurrence: DK)
  Receive Date: 20180709
  Receipt Date: 20180914
  Transmission Date: 20181010
  Serious: Yes (Life-Threatening, Hospitalization)
  Sender: FDA-Public Use
  Company Number: DK-JNJFOC-20180708408

PATIENT
  Age: 58 Year
  Sex: Male

DRUGS (1)
  1. YONDELIS [Suspect]
     Active Substance: TRABECTEDIN
     Indication: LIPOSARCOMA
     Dosage: TOTAL 7 CYCLES
     Route: 042
     Dates: start: 201712, end: 20180528

REACTIONS (7)
  - Sinus arrest [Recovered/Resolved]
  - Sinus bradycardia [Recovered/Resolved]
  - Supraventricular extrasystoles [Recovered/Resolved]
  - Abdominal discomfort [Recovered/Resolved]
  - Syncope [Recovered/Resolved]
  - Cardiac pacemaker insertion [Unknown]
  - Nodal arrhythmia [Recovered/Resolved]

NARRATIVE: CASE EVENT DATE: 201802
